FAERS Safety Report 8130543-9 (Version None)
Quarter: 2012Q1

REPORT INFORMATION
  Report Type: 
  Country: None (occurrence: None)
  Receive Date: 20120210
  Receipt Date: 20120202
  Transmission Date: 20120608
  Serious: Yes (Other)
  Sender: FDA-Public Use
  Company Number: US-ASTRAZENECA-2012SE07573

PATIENT
  Sex: Male
  Weight: 131.5 kg

DRUGS (5)
  1. SEROQUEL XR [Suspect]
     Indication: INSOMNIA
     Route: 048
  2. SEROQUEL XR [Suspect]
     Route: 048
  3. GABAPENTIN [Concomitant]
  4. LEXAPRO [Concomitant]
  5. VITAMIN D SHOTS [Concomitant]
     Dosage: MONTH

REACTIONS (5)
  - WEIGHT INCREASED [None]
  - CEREBROVASCULAR ACCIDENT [None]
  - FAECAL INCONTINENCE [None]
  - OFF LABEL USE [None]
  - URINARY INCONTINENCE [None]
